FAERS Safety Report 6136671-1 (Version None)
Quarter: 2009Q1

REPORT INFORMATION
  Report Type: 
  Country: None (occurrence: None)
  Receive Date: 20090330
  Receipt Date: 20090323
  Transmission Date: 20090719
  Serious: Yes (Other)
  Sender: FDA-Public Use
  Company Number: JP-BAYER-200916982GPV

PATIENT
  Age: 79 Year
  Sex: Male

DRUGS (11)
  1. SEIBULE [Suspect]
     Indication: DIABETES MELLITUS
     Route: 048
     Dates: start: 20090216, end: 20090305
  2. NIFELANTERN CR (NIFEDIPINE) [Suspect]
     Indication: DRUG USE FOR UNKNOWN INDICATION
     Route: 048
     Dates: end: 20090306
  3. NIFELANTERN CR (NIFEDIPINE) [Suspect]
     Route: 048
  4. LANSORAL (LANSOPRAZOLE) [Suspect]
     Indication: DRUG USE FOR UNKNOWN INDICATION
     Route: 048
  5. CARNACULIN [KALLIDINOGENASE] [Suspect]
     Indication: DRUG USE FOR UNKNOWN INDICATION
     Route: 048
     Dates: end: 20090306
  6. CARNACULIN [KALLIDINOGENASE] [Suspect]
     Route: 048
  7. OLMETEC [Concomitant]
     Indication: DRUG USE FOR UNKNOWN INDICATION
     Route: 048
  8. PLETMOL [Concomitant]
     Indication: DRUG USE FOR UNKNOWN INDICATION
     Route: 048
     Dates: end: 20090306
  9. PLETMOL [Concomitant]
     Route: 048
  10. METHYCOBIDE [Concomitant]
     Indication: DRUG USE FOR UNKNOWN INDICATION
     Route: 048
     Dates: end: 20090306
  11. METHYCOBIDE [Concomitant]
     Route: 048

REACTIONS (2)
  - ILEUS [None]
  - INTESTINAL ISCHAEMIA [None]
